FAERS Safety Report 10135800 (Version 1)
Quarter: 2014Q2

REPORT INFORMATION
  Report Type: Report from Study
  Country: CA (occurrence: CA)
  Receive Date: 20140429
  Receipt Date: 20140429
  Transmission Date: 20141212
  Serious: Yes (Other)
  Sender: FDA-Public Use
  Company Number: CA-US-EMD SERONO, INC.-7284749

PATIENT
  Age: 57 Year
  Sex: Female

DRUGS (2)
  1. REBIF [Suspect]
     Indication: RELAPSING-REMITTING MULTIPLE SCLEROSIS
     Route: 058
     Dates: start: 20100519, end: 20130827
  2. REBIF [Suspect]
     Dates: start: 20140101

REACTIONS (3)
  - Breast cancer [Recovering/Resolving]
  - Pulmonary embolism [Recovered/Resolved]
  - Multiple sclerosis relapse [Recovered/Resolved]
